FAERS Safety Report 16346641 (Version 4)
Quarter: 2020Q1

REPORT INFORMATION
  Report Type: Spontaneous
  Country: US (occurrence: US)
  Receive Date: 20190523
  Receipt Date: 20200203
  Transmission Date: 20200409
  Serious: No
  Sender: FDA-Public Use
  Company Number: US-PFIZER INC-2019216927

PATIENT
  Age: 72 Year
  Sex: Female

DRUGS (4)
  1. FASLODEX [Concomitant]
     Active Substance: FULVESTRANT
     Dosage: UNK UNK, MONTHLY
     Dates: start: 201902
  2. IBRANCE [Suspect]
     Active Substance: PALBOCICLIB
     Indication: BREAST CANCER METASTATIC
     Dosage: 125 MG, CYCLIC (21 DAYS + OFF 7)
     Dates: start: 201902, end: 2019
  3. XGEVA [Concomitant]
     Active Substance: DENOSUMAB
     Dosage: UNK
     Dates: start: 201902
  4. IBRANCE [Suspect]
     Active Substance: PALBOCICLIB
     Indication: BREAST CANCER
     Dosage: 100 MG, CYCLIC (TAKE FOR 21 DAYS + OFF 7)
     Dates: start: 2019

REACTIONS (4)
  - Full blood count decreased [Not Recovered/Not Resolved]
  - Neoplasm progression [Unknown]
  - White blood cell count decreased [Unknown]
  - Blister [Recovering/Resolving]
